FAERS Safety Report 9414759 (Version 1)
Quarter: 2013Q3

REPORT INFORMATION
  Report Type: Spontaneous
  Country: US (occurrence: US)
  Receive Date: 20130723
  Receipt Date: 20130723
  Transmission Date: 20140515
  Serious: Yes (Other)
  Sender: FDA-Public Use
  Company Number: US-UCBSA-092090

PATIENT
  Sex: 0

DRUGS (5)
  1. CIMZIA [Suspect]
     Indication: CROHN^S DISEASE
     Route: 064
     Dates: start: 201204, end: 20120727
  2. PENTASA [Concomitant]
     Route: 064
     Dates: end: 20120727
  3. PROMETHAZINE [Concomitant]
     Route: 064
     Dates: end: 20120727
  4. PERCOCET [Concomitant]
     Dosage: DOSE :10/650
     Route: 064
     Dates: end: 20120727
  5. AMITRIPTYLINE [Concomitant]
     Dosage: DOSE : 10/650
     Route: 064
     Dates: end: 20120322

REACTIONS (2)
  - Premature baby [Unknown]
  - Foetal exposure during pregnancy [Recovered/Resolved]
